FAERS Safety Report 8111611 (Version 2)
Quarter: 2012Q4

REPORT INFORMATION
  Report Type: 
  Country: US (occurrence: US)
  Receive Date: 20110829
  Receipt Date: 20121029
  Transmission Date: 20130627
  Serious: Yes (Hospitalization, Disabling, Other)
  Sender: FDA-Public Use
  Company Number: US-BAYER-2011-075062

PATIENT
  Age: 19 Year
  Sex: Female

DRUGS (9)
  1. YASMIN [Suspect]
  2. YAZ [Suspect]
  3. OCELLA [Suspect]
  4. AZATHIOPRINE [Concomitant]
     Dosage: 50 mg a day
  5. BENTRYL [Concomitant]
     Dosage: 10 mg, UNK
  6. REMICADE [Concomitant]
     Dosage: q 8 week.
  7. IMURAN [Concomitant]
  8. SOLU-MEDROL [Concomitant]
     Indication: ULCERATIVE COLITIS
  9. KEPPRA [Concomitant]
     Indication: FOCAL SEIZURES

REACTIONS (5)
  - Superior sagittal sinus thrombosis [None]
  - Thrombosis [None]
  - Cerebrovascular accident [None]
  - Injury [None]
  - Pain [None]
